FAERS Safety Report 20264907 (Version 1)
Quarter: 2021Q4

REPORT INFORMATION
  Report Type: Report from Study
  Country: EC (occurrence: EC)
  Receive Date: 20211231
  Receipt Date: 20211231
  Transmission Date: 20220304
  Serious: Yes (Hospitalization)
  Sender: FDA-Public Use
  Company Number: EC-NOVARTISPH-PHHY2019EC024156

PATIENT
  Age: 69 Year
  Sex: Female
  Weight: 70.295 kg

DRUGS (4)
  1. TASIGNA [Suspect]
     Active Substance: NILOTINIB
     Indication: Chronic myeloid leukaemia
     Dosage: 400 MG, BID
     Route: 048
     Dates: start: 20181123, end: 20190603
  2. TASIGNA [Suspect]
     Active Substance: NILOTINIB
     Dosage: 200 MG, BID
     Route: 048
  3. TASIGNA [Suspect]
     Active Substance: NILOTINIB
     Dosage: 600 MG (400 MG IN THE MORNING AND 200 MG IN THE NIGHT)
     Route: 048
     Dates: start: 20190604, end: 20210914
  4. TASIGNA [Suspect]
     Active Substance: NILOTINIB
     Dosage: 400 MG, BID
     Route: 048
     Dates: start: 20210915

REACTIONS (10)
  - Bone pain [Recovering/Resolving]
  - Gastric infection [Recovering/Resolving]
  - Burning sensation [Recovering/Resolving]
  - Angina pectoris [Recovering/Resolving]
  - Oral pain [Recovered/Resolved]
  - Memory impairment [Not Recovered/Not Resolved]
  - Agitation [Not Recovered/Not Resolved]
  - Pain [Unknown]
  - Chest pain [Not Recovered/Not Resolved]
  - Dyspnoea [Unknown]

NARRATIVE: CASE EVENT DATE: 20181101
